FAERS Safety Report 5787314-8 (Version None)
Quarter: 2008Q2

REPORT INFORMATION
  Report Type: 
  Country: None (occurrence: None)
  Receive Date: 20080625
  Receipt Date: 20070815
  Transmission Date: 20081010
  Serious: No
  Sender: FDA-Public Use
  Company Number: US-ASTRAZENECA-2007UW19691

PATIENT
  Age: 53 Year
  Sex: Male
  Weight: 63.5 kg

DRUGS (6)
  1. PULMICORT RESPULES [Suspect]
     Indication: DYSPNOEA
     Dosage: 0.5 MG BID
     Route: 055
  2. PULMICORT RESPULES [Suspect]
     Indication: OXYGEN SATURATION DECREASED
     Dosage: 0.5 MG BID
     Route: 055
  3. PULMICORT RESPULES [Suspect]
     Dosage: 0.5 MG DAILY
     Route: 055
  4. PULMICORT RESPULES [Suspect]
     Dosage: 0.5 MG DAILY
     Route: 055
  5. DUONEB [Concomitant]
  6. OXYCONTIN [Concomitant]

REACTIONS (4)
  - ANGIOPATHY [None]
  - GAIT DISTURBANCE [None]
  - OEDEMA PERIPHERAL [None]
  - PAIN IN EXTREMITY [None]
